FAERS Safety Report 5825935-4 (Version None)
Quarter: 2008Q3

REPORT INFORMATION
  Report Type: 
  Country: None (occurrence: None)
  Receive Date: 20080729
  Receipt Date: 20080721
  Transmission Date: 20090109
  Serious: Yes (Hospitalization)
  Sender: FDA-Public Use
  Company Number: PHHY2008FR15340

PATIENT
  Sex: Male

DRUGS (9)
  1. ESIDRIX [Suspect]
     Indication: HYPERTENSION
     Dosage: 25 MG 1 TAB EVERY OTHER DAY
     Dates: end: 20080528
  2. NICARDIPINE HYDROCHLORIDE [Concomitant]
     Indication: HYPERTENSION
     Dosage: 50 MG 2 DAILY
     Route: 048
     Dates: end: 20080603
  3. IRBESARTAN [Concomitant]
     Indication: HYPERTENSION
     Dosage: 300 MG, QD
     Route: 048
     Dates: end: 20080604
  4. KARDEGIC [Concomitant]
     Indication: PROPHYLAXIS
     Dosage: 75 MG POWDER
     Route: 048
  5. IKOREL [Concomitant]
     Indication: CORONARY ARTERY INSUFFICIENCY
     Dosage: 10 MG 2 DAILY ORAL DOSE
  6. LESCOL [Concomitant]
     Indication: DYSLIPIDAEMIA
     Dosage: 80 MG, QD
  7. MEDIATENSYL [Concomitant]
     Indication: HYPERTENSION
     Dosage: UNK
     Dates: end: 20080603
  8. AMIODARONE [Concomitant]
     Indication: ATRIAL FIBRILLATION
     Dosage: 1 DAILY DOSE
     Route: 048
  9. OGAST [Concomitant]
     Indication: GASTROOESOPHAGEAL REFLUX DISEASE
     Dosage: 1 DAILY DOSE
     Route: 048

REACTIONS (11)
  - ABNORMAL BEHAVIOUR [None]
  - CEREBRAL ATROPHY [None]
  - COMPUTERISED TOMOGRAM ABNORMAL [None]
  - CONFUSIONAL STATE [None]
  - DISORIENTATION [None]
  - ELECTROENCEPHALOGRAM ABNORMAL [None]
  - HYPONATRAEMIA [None]
  - OEDEMA PERIPHERAL [None]
  - SOMNOLENCE [None]
  - UREA RENAL CLEARANCE DECREASED [None]
  - URINE SODIUM DECREASED [None]
